FAERS Safety Report 19643856 (Version 6)
Quarter: 2021Q4

REPORT INFORMATION
  Report Type: Report from Study
  Country: US (occurrence: US)
  Receive Date: 20210730
  Receipt Date: 20211124
  Transmission Date: 20220303
  Serious: No
  Sender: FDA-Public Use
  Company Number: NVSC2021US169925

PATIENT
  Sex: Male

DRUGS (4)
  1. ENTRESTO [Suspect]
     Active Substance: SACUBITRIL\VALSARTAN
     Indication: Product used for unknown indication
     Dosage: 100 MG, BID(49/51MG, TWICE A DAY)
     Route: 048
     Dates: start: 2017
  2. FUROSEMIDE [Suspect]
     Active Substance: FUROSEMIDE
     Indication: Product used for unknown indication
     Dosage: UNK
     Route: 065
  3. FUROSEMIDE [Suspect]
     Active Substance: FUROSEMIDE
     Dosage: UNK (DOSAGE HAS BEEN CHANGES SINCE HE STARTED TAKING ENTRESTO)
     Route: 065
  4. MONTELUKAST [Suspect]
     Active Substance: MONTELUKAST SODIUM
     Indication: Product used for unknown indication
     Dosage: UNK
     Route: 065

REACTIONS (12)
  - Weight increased [Unknown]
  - Throat clearing [Unknown]
  - Amnesia [Unknown]
  - Joint swelling [Recovering/Resolving]
  - Hypotension [Unknown]
  - Cough [Unknown]
  - Sleep apnoea syndrome [Unknown]
  - Blood potassium increased [Unknown]
  - Dry throat [Unknown]
  - Dyspnoea [Recovering/Resolving]
  - Unevaluable event [Unknown]
  - Product dose omission issue [Unknown]
